FAERS Safety Report 4391482-2 (Version None)
Quarter: 2004Q3

REPORT INFORMATION
  Report Type: 
  Country: None (occurrence: None)
  Receive Date: 20040701
  Receipt Date: 20040616
  Transmission Date: 20050211
  Serious: Yes (Hospitalization)
  Sender: FDA-Public Use
  Company Number: 196466

PATIENT
  Age: 57 Year
  Sex: Female

DRUGS (7)
  1. AVONEX [Suspect]
     Indication: MULTIPLE SCLEROSIS
     Dosage: 30 MCG QW IM
     Route: 030
     Dates: start: 19980430, end: 20030101
  2. AVONEX [Suspect]
     Indication: MULTIPLE SCLEROSIS
     Dosage: 30 MCG QW IM
     Route: 030
     Dates: start: 20030101
  3. AVANDIA [Concomitant]
  4. PROTONIX [Concomitant]
  5. MULTI-VITAMINS [Concomitant]
  6. VITAMIN C [Concomitant]
  7. VITAMIN B COMPLEX CAP [Concomitant]

REACTIONS (2)
  - BEDRIDDEN [None]
  - UROSEPSIS [None]
